FAERS Safety Report 9129101 (Version 1)
Quarter: 2013Q1

REPORT INFORMATION
  Report Type: Spontaneous
  Country: US (occurrence: US)
  Receive Date: 20130125
  Receipt Date: 20130125
  Transmission Date: 20140127
  Serious: Yes (Death)
  Sender: FDA-Public Use
  Company Number: US-ELI_LILLY_AND_COMPANY-US201301007985

PATIENT
  Sex: Male

DRUGS (1)
  1. GEMZAR [Suspect]
     Dosage: 1440 MG, WEEKLY (1/W)
     Dates: start: 20120118, end: 201203

REACTIONS (2)
  - Blood disorder [Fatal]
  - Malignant neoplasm progression [Fatal]
